FAERS Safety Report 5466980-0 (Version None)
Quarter: 2007Q3

REPORT INFORMATION
  Report Type: 
  Country: None (occurrence: None)
  Receive Date: 20070921
  Receipt Date: 20070921
  Transmission Date: 20080115
  Serious: Yes (Other)
  Sender: FDA-Public Use
  Company Number: None

PATIENT
  Age: 63 Year
  Sex: Female

DRUGS (1)
  1. SYNTHROID [Suspect]
     Dosage: ONE BY MOUTH DAILY
     Route: 048
     Dates: start: 20020101, end: 20070101

REACTIONS (1)
  - RESTLESS LEGS SYNDROME [None]
